FAERS Safety Report 6696816-1 (Version None)
Quarter: 2010Q2

REPORT INFORMATION
  Report Type: 
  Country: None (occurrence: None)
  Receive Date: 20100426
  Receipt Date: 20100422
  Transmission Date: 20101027
  Serious: Yes (Hospitalization)
  Sender: FDA-Public Use
  Company Number: GXKR2009DE04586

PATIENT
  Age: 20 Year
  Sex: Female

DRUGS (3)
  1. AZATHIOPRINE SODIUM [Suspect]
     Indication: CROHN'S DISEASE
     Dosage: 100 MG, QD
     Route: 048
     Dates: start: 20080626, end: 20080731
  2. PREDNISOLONE [Interacting]
     Indication: CROHN'S DISEASE
     Dosage: 20 MG, QD
     Route: 048
     Dates: start: 20080626
  3. PREDNISOLONE [Interacting]

REACTIONS (1)
  - PANCYTOPENIA [None]
